FAERS Safety Report 5917517-0 (Version None)
Quarter: 2008Q4

REPORT INFORMATION
  Report Type: 
  Country: None (occurrence: None)
  Receive Date: 20081010
  Receipt Date: 20081010
  Transmission Date: 20090506
  Serious: Yes (Other)
  Sender: FDA-Public Use
  Company Number: None

PATIENT
  Age: 56 Year
  Sex: Male
  Weight: 40.3701 kg

DRUGS (1)
  1. AMIODARONE HCL [Suspect]
     Indication: ATRIAL FIBRILLATION
     Dosage: 150MG ONCE IV
     Route: 042
     Dates: start: 20081006, end: 20081006

REACTIONS (3)
  - LIP SWELLING [None]
  - PARAESTHESIA ORAL [None]
  - SWOLLEN TONGUE [None]
